FAERS Safety Report 20778364 (Version 6)
Quarter: 2023Q1

REPORT INFORMATION
  Report Type: Spontaneous
  Country: US (occurrence: US)
  Receive Date: 20220503
  Receipt Date: 20230103
  Transmission Date: 20230417
  Serious: No
  Sender: FDA-Public Use
  Company Number: US-BAYER-2022A063667

PATIENT
  Age: 27 Year
  Sex: Female
  Weight: 77.11 kg

DRUGS (2)
  1. MIRENA [Suspect]
     Active Substance: LEVONORGESTREL
     Indication: Contraception
     Dosage: 20?G/DAY
     Route: 015
     Dates: start: 20210518
  2. TAKHZYRO [Concomitant]
     Active Substance: LANADELUMAB-FLYO
     Dosage: UNK

REACTIONS (4)
  - Lip swelling [Recovered/Resolved]
  - Swelling face [Recovered/Resolved]
  - Swelling face [Recovered/Resolved]
  - Weight decreased [Not Recovered/Not Resolved]

NARRATIVE: CASE EVENT DATE: 20220428
